FAERS Safety Report 4331699-6 (Version None)
Quarter: 2004Q2

REPORT INFORMATION
  Report Type: 
  Country: None (occurrence: None)
  Receive Date: 20040405
  Receipt Date: 20030313
  Transmission Date: 20050107
  Serious: No
  Sender: FDA-Public Use
  Company Number: US-GLAXOSMITHKLINE-A0400195A

PATIENT
  Sex: Male

DRUGS (3)
  1. FLOVENT [Suspect]
     Dosage: 220MCG TWICE PER DAY
     Route: 055
     Dates: end: 20030312
  2. SEREVENT [Suspect]
     Dosage: 1PUFF TWICE PER DAY
     Route: 055
  3. ALCOHOL [Suspect]
     Route: 048

REACTIONS (3)
  - DRUG INTERACTION [None]
  - ORAL MUCOSAL BLISTERING [None]
  - SWELLING FACE [None]
